FAERS Safety Report 4388216-4 (Version None)
Quarter: 2004Q2

REPORT INFORMATION
  Report Type: 
  Country: None (occurrence: None)
  Receive Date: 20040629
  Receipt Date: 20040629
  Transmission Date: 20050107
  Serious: Yes (Life-Threatening, Hospitalization)
  Sender: FDA-Public Use
  Company Number: None

PATIENT
  Sex: Female

DRUGS (3)
  1. TAXOTERE [Suspect]
     Indication: GASTRIC CANCER
     Dosage: 30 MG /M2 IV
     Route: 042
     Dates: start: 20020802
  2. CISPLATIN [Suspect]
     Indication: GASTRIC CANCER
     Dosage: 25 MG/M2/IV
     Route: 042
     Dates: start: 20020805
  3. CPT-11 (D1, 8 OF 21 D CYCLE) [Suspect]
     Indication: GASTRIC CANCER
     Dosage: 48.75 MG /M2 IV
     Route: 042
     Dates: start: 20020805

REACTIONS (3)
  - DIARRHOEA [None]
  - NEUTROPENIA [None]
  - WHITE BLOOD CELL COUNT DECREASED [None]
